FAERS Safety Report 17885203 (Version 1)
Quarter: 2020Q2

REPORT INFORMATION
  Report Type: Spontaneous
  Country: US (occurrence: US)
  Receive Date: 20200611
  Receipt Date: 20200611
  Transmission Date: 20200714
  Serious: Yes (Other)
  Sender: FDA-Public Use
  Company Number: US-PFIZER INC-2020224118

PATIENT
  Age: 72 Year
  Sex: Female
  Weight: 61.23 kg

DRUGS (4)
  1. AMOXICILLIN. [Suspect]
     Active Substance: AMOXICILLIN
     Dosage: UNK
     Dates: start: 20200602
  2. DUPIXENT [Suspect]
     Active Substance: DUPILUMAB
     Dosage: UNK, BIWEEKLY
  3. TOBRAMYCIN. [Suspect]
     Active Substance: TOBRAMYCIN
     Dosage: UNK, CYCLIC (TWICE A DAY FOR 28 DAYS ON AND 28 DAYS OFF)
  4. IBUPROFEN. [Suspect]
     Active Substance: IBUPROFEN
     Dosage: 800 MG, 3X/DAY
     Dates: start: 20200602

REACTIONS (8)
  - Back pain [Recovering/Resolving]
  - Dyspnoea [Unknown]
  - Loss of personal independence in daily activities [Recovering/Resolving]
  - Overdose [Unknown]
  - Drug hypersensitivity [Unknown]
  - Muscle spasms [Recovering/Resolving]
  - Abdominal pain [Recovering/Resolving]
  - Abdominal tenderness [Recovering/Resolving]

NARRATIVE: CASE EVENT DATE: 20200605
